FAERS Safety Report 4527055-8 (Version None)
Quarter: 2004Q4

REPORT INFORMATION
  Report Type: 
  Country: None (occurrence: None)
  Receive Date: 20041129
  Receipt Date: 20040622
  Transmission Date: 20050328
  Serious: Yes (Hospitalization, Other)
  Sender: FDA-Public Use
  Company Number: USA040463740

PATIENT
  Age: 29 Year
  Sex: Male

DRUGS (2)
  1. ZYPREXA [Suspect]
     Indication: SLEEP DISORDER
     Dosage: 2.5 MG/1 DAY
  2. ZOLOFT [Concomitant]

REACTIONS (8)
  - ASTHENIA [None]
  - DEPRESSED LEVEL OF CONSCIOUSNESS [None]
  - HEAD INJURY [None]
  - INTENTIONAL OVERDOSE [None]
  - LETHARGY [None]
  - MEMORY IMPAIRMENT [None]
  - NECK PAIN [None]
  - NEUROLEPTIC MALIGNANT SYNDROME [None]
